FAERS Safety Report 8129504-5 (Version None)
Quarter: 2012Q1

REPORT INFORMATION
  Report Type: 
  Country: None (occurrence: None)
  Receive Date: 20120210
  Receipt Date: 20120201
  Transmission Date: 20120608
  Serious: Yes (Hospitalization)
  Sender: FDA-Public Use
  Company Number: NL-MEDIMMUNE-MEDI-0014417

PATIENT
  Sex: Male
  Weight: 9.12 kg

DRUGS (1)
  1. SYNAGIS [Suspect]
     Indication: HEART DISEASE CONGENITAL
     Dates: start: 20110916, end: 20111205

REACTIONS (6)
  - CRYING [None]
  - PNEUMONIA [None]
  - INCREASED VISCOSITY OF NASAL SECRETION [None]
  - MALAISE [None]
  - DYSPNOEA [None]
  - NASOPHARYNGITIS [None]
